FAERS Safety Report 4316935-4 (Version None)
Quarter: 2004Q1

REPORT INFORMATION
  Report Type: 
  Country: None (occurrence: None)
  Receive Date: 20040312
  Receipt Date: 20040301
  Transmission Date: 20041129
  Serious: Yes (Other)
  Sender: FDA-Public Use
  Company Number: US-JNJFOC-20040300764

PATIENT
  Age: 40 Year
  Sex: Female
  Weight: 58.9676 kg

DRUGS (5)
  1. REMICADE [Suspect]
     Indication: RHEUMATOID ARTHRITIS
     Dosage: 400 MG, INTRAVENOUS
     Route: 042
     Dates: start: 20030301
  2. PLAQUENIL [Concomitant]
  3. METHOTREXATE [Concomitant]
  4. WELLBUTRIN [Concomitant]
  5. CENTRUM SILVER (CENTRUM SILVER) [Concomitant]

REACTIONS (4)
  - ARTHRALGIA [None]
  - PYREXIA [None]
  - RASH [None]
  - SYSTEMIC LUPUS ERYTHEMATOSUS [None]
